FAERS Safety Report 24690314 (Version 7)
Quarter: 2025Q3

REPORT INFORMATION
  Report Type: Report from Study
  Country: KR (occurrence: KR)
  Receive Date: 20241203
  Receipt Date: 20250825
  Transmission Date: 20251020
  Serious: Yes (Hospitalization, Other)
  Sender: ASTELLAS
  Company Number: KR-ASTELLAS-2024-AER-003220

PATIENT
  Age: 83 Year
  Sex: Female
  Weight: 56 kg

DRUGS (18)
  1. GILTERITINIB [Suspect]
     Active Substance: GILTERITINIB
     Indication: Acute myeloid leukaemia refractory
     Route: 048
     Dates: start: 20230520, end: 20230604
  2. GILTERITINIB [Suspect]
     Active Substance: GILTERITINIB
     Indication: FLT3 gene mutation
     Route: 048
     Dates: start: 20230605, end: 20240120
  3. GILTERITINIB [Suspect]
     Active Substance: GILTERITINIB
     Indication: Acute myeloid leukaemia recurrent
     Route: 048
     Dates: start: 20240129, end: 20240402
  4. GILTERITINIB [Suspect]
     Active Substance: GILTERITINIB
     Route: 048
     Dates: start: 20240403, end: 20240424
  5. GILTERITINIB [Suspect]
     Active Substance: GILTERITINIB
     Route: 048
     Dates: start: 20240425
  6. GILTERITINIB [Suspect]
     Active Substance: GILTERITINIB
     Route: 048
     Dates: start: 20230403, end: 20230519
  7. Beecom [Concomitant]
     Indication: Vitamin supplementation
     Dosage: ONGOING
     Route: 048
     Dates: start: 20230403
  8. D-Mac [Concomitant]
     Indication: Prophylaxis
     Dosage: ONGOING
     Route: 048
     Dates: start: 20230403
  9. Pharma Mecobalamin [Concomitant]
     Indication: Vitamin supplementation
     Dosage: ONGOING
     Route: 048
     Dates: start: 20230403
  10. FOLIC ACID [Concomitant]
     Active Substance: FOLIC ACID
     Indication: Prophylaxis
     Dosage: ONGOING
     Route: 048
     Dates: start: 20230403
  11. Sinil pyridoxine [Concomitant]
     Indication: Prophylaxis
     Dosage: ONGOING
     Route: 048
     Dates: start: 20230403
  12. CITOPCIN [Concomitant]
     Indication: Prophylaxis
     Dosage: ONGOING
     Route: 048
     Dates: start: 20230403
  13. Chlorpheniramine malate injection Huons [Concomitant]
     Indication: Prophylaxis
     Route: 042
     Dates: start: 20230403, end: 20230403
  14. LEVOTHYROXINE SODIUM [Concomitant]
     Active Substance: LEVOTHYROXINE SODIUM
     Indication: Hypothyroidism
     Dosage: ONGOING
     Route: 048
     Dates: start: 20220503
  15. ATACAND [Concomitant]
     Active Substance: CANDESARTAN CILEXETIL
     Indication: Hypertension
     Route: 048
     Dates: start: 20230427, end: 20230725
  16. CANDEMORE [Concomitant]
     Indication: Hypertension
     Dosage: ONGOING
     Route: 048
     Dates: start: 20230508
  17. NORVASC [Concomitant]
     Active Substance: AMLODIPINE BESYLATE
     Indication: Hypertension
     Dosage: ONGOING
     Route: 048
     Dates: start: 20230505
  18. PANTOPRAZOLE SODIUM [Concomitant]
     Active Substance: PANTOPRAZOLE SODIUM
     Indication: Prophylaxis
     Route: 048
     Dates: start: 20230630, end: 20231128

REACTIONS (4)
  - Arthritis [Recovered/Resolved]
  - Platelet count decreased [Recovered/Resolved]
  - Pyelonephritis acute [Recovered/Resolved]
  - COVID-19 [Recovered/Resolved]

NARRATIVE: CASE EVENT DATE: 20230503
